FAERS Safety Report 20655343 (Version 2)
Quarter: 2022Q2

REPORT INFORMATION
  Report Type: Spontaneous
  Country: HR (occurrence: HR)
  Receive Date: 20220330
  Receipt Date: 20220409
  Transmission Date: 20220721
  Serious: Yes (Hospitalization, Other)
  Sender: FDA-Public Use
  Company Number: HR-NOVARTISPH-NVSC2022HR070306

PATIENT
  Age: 75 Year
  Sex: Female

DRUGS (10)
  1. EXFORGE HCT [Suspect]
     Active Substance: AMLODIPINE BESYLATE\HYDROCHLOROTHIAZIDE\VALSARTAN
     Indication: Product used for unknown indication
     Dosage: UNK (5MG/160MG/12.5 MG)
     Route: 065
  2. IPILIMUMAB [Suspect]
     Active Substance: IPILIMUMAB
     Indication: Clear cell renal cell carcinoma
     Dosage: UNK, (3RD CYCLE)
     Route: 065
     Dates: start: 2021, end: 2021
  3. IPILIMUMAB [Suspect]
     Active Substance: IPILIMUMAB
     Indication: Metastases to lung
     Dosage: UNK,(2ND CYCLE)
     Route: 065
     Dates: start: 2021, end: 2021
  4. IPILIMUMAB [Suspect]
     Active Substance: IPILIMUMAB
     Dosage: UNK,(FIRST CYCLE)
     Route: 065
     Dates: start: 20210625, end: 2021
  5. IPILIMUMAB [Suspect]
     Active Substance: IPILIMUMAB
     Dosage: UNK,(4TH CYCLE)
     Route: 065
     Dates: start: 20210902, end: 20210902
  6. BISOPROLOL FUMARATE [Suspect]
     Active Substance: BISOPROLOL FUMARATE
     Indication: Hypertension
     Dosage: 2.5 MG
     Route: 065
  7. NIVOLUMAB [Suspect]
     Active Substance: NIVOLUMAB
     Indication: Clear cell renal cell carcinoma
     Dosage: UNK, (2ND CYCLE)
     Route: 065
     Dates: start: 2021, end: 2021
  8. NIVOLUMAB [Suspect]
     Active Substance: NIVOLUMAB
     Indication: Metastases to lung
     Dosage: UNK,(1ST CYCLE)
     Route: 065
     Dates: start: 20210625, end: 2021
  9. NIVOLUMAB [Suspect]
     Active Substance: NIVOLUMAB
     Dosage: UNK,(4TH CYCLE)
     Route: 065
     Dates: start: 20210902, end: 20210902
  10. NIVOLUMAB [Suspect]
     Active Substance: NIVOLUMAB
     Dosage: UNK, (3RD CYCLE)
     Route: 065
     Dates: end: 2021

REACTIONS (5)
  - Secondary adrenocortical insufficiency [Recovering/Resolving]
  - Hypophysitis [Recovering/Resolving]
  - Hypopituitarism [Recovering/Resolving]
  - Central hypothyroidism [Recovering/Resolving]
  - Coronavirus infection [Recovering/Resolving]

NARRATIVE: CASE EVENT DATE: 20210101
